FAERS Safety Report 15317456 (Version 1)
Quarter: 2018Q3

REPORT INFORMATION
  Report Type: Spontaneous
  Country: FR (occurrence: FR)
  Receive Date: 20180824
  Receipt Date: 20180824
  Transmission Date: 20181010
  Serious: Yes (Other)
  Sender: FDA-Public Use
  Company Number: FR-MERCK KGAA-2054211

PATIENT
  Age: 59 Year
  Sex: Female

DRUGS (1)
  1. NOVOTHYROX [Suspect]
     Active Substance: LEVOTHYROXINE SODIUM
     Indication: THYROID CANCER

REACTIONS (9)
  - Malaise [None]
  - Mood swings [None]
  - Amnesia [None]
  - Headache [None]
  - Suicidal ideation [None]
  - Fatigue [None]
  - Visual impairment [None]
  - Verbal abuse [None]
  - General physical health deterioration [None]
